FAERS Safety Report 7864475-8 (Version None)
Quarter: 2011Q4

REPORT INFORMATION
  Report Type: 
  Country: None (occurrence: None)
  Receive Date: 20111028
  Receipt Date: 20111020
  Transmission Date: 20120403
  Serious: Yes (Other)
  Sender: FDA-Public Use
  Company Number: PHFR2011GB01659

PATIENT
  Sex: Male

DRUGS (13)
  1. LESCOL [Suspect]
     Dosage: 20 MG/DAY
  2. RAMIPRIL [Concomitant]
     Indication: DIABETES MELLITUS
     Dosage: 10 MG, DAILY
     Route: 048
     Dates: start: 20041001
  3. Q10 [Concomitant]
     Dosage: UNK
     Route: 065
  4. APIDRA [Concomitant]
     Indication: DIABETES MELLITUS
     Dosage: UNK
     Route: 058
     Dates: start: 20100601
  5. LESCOL [Suspect]
     Dosage: 40 MG/DAY
  6. LESCOL [Suspect]
     Dosage: 20 MG/DAY
  7. TADALAFIL [Concomitant]
     Indication: ERECTILE DYSFUNCTION
     Dosage: UNK
     Route: 065
  8. SIMVASTATIN [Concomitant]
     Dosage: UNK
  9. SILDENAFIL [Concomitant]
     Indication: ERECTILE DYSFUNCTION
     Dosage: UNK
     Route: 065
  10. METFORMIN HCL [Concomitant]
     Indication: DIABETES MELLITUS
     Dosage: UNK
     Route: 048
  11. IRBESARTAN [Concomitant]
     Indication: BLOOD PRESSURE INCREASED
     Dosage: 150 MG, DAILY
     Route: 048
  12. SYMBICORT [Concomitant]
     Indication: ASTHMA
     Dosage: UNK
     Route: 065
  13. TERBUTALINE [Concomitant]
     Indication: ASTHMA
     Dosage: UNK
     Route: 065

REACTIONS (5)
  - PAIN IN EXTREMITY [None]
  - ARTHRALGIA [None]
  - EXOSTOSIS [None]
  - BACK PAIN [None]
  - MYALGIA [None]
